FAERS Safety Report 7244602-6 (Version None)
Quarter: 2011Q1

REPORT INFORMATION
  Report Type: 
  Country: None (occurrence: None)
  Receive Date: 20110125
  Receipt Date: 20110118
  Transmission Date: 20110831
  Serious: Yes (Other)
  Sender: FDA-Public Use
  Company Number: US-US-EMD SERONO, INC.-7037401

PATIENT
  Sex: Female

DRUGS (3)
  1. LOVENOX [Concomitant]
     Indication: PULMONARY EMBOLISM
     Dates: start: 20100701
  2. REBIF [Suspect]
     Indication: MULTIPLE SCLEROSIS
     Route: 058
     Dates: start: 20060117
  3. COUMADIN [Concomitant]
     Indication: PULMONARY EMBOLISM
     Dates: start: 20100701, end: 20100101

REACTIONS (4)
  - DRUG HYPERSENSITIVITY [None]
  - CONVULSION [None]
  - PHARYNGITIS STREPTOCOCCAL [None]
  - INJECTION SITE ERYTHEMA [None]
